FAERS Safety Report 8583097-7 (Version None)
Quarter: 2012Q3

REPORT INFORMATION
  Report Type: 
  Country: None (occurrence: None)
  Receive Date: 20120809
  Receipt Date: 20120731
  Transmission Date: 20120928
  Serious: Yes (Hospitalization, Congenital Anomaly)
  Sender: FDA-Public Use
  Company Number: US-JNJFOC-20120701812

PATIENT
  Sex: Male

DRUGS (7)
  1. TETRAHYDROCANNABINOL [Suspect]
     Indication: FOETAL EXPOSURE DURING PREGNANCY
     Route: 064
  2. METHAMPHETAMINE HYDROCHLORIDE [Suspect]
     Indication: FOETAL EXPOSURE DURING PREGNANCY
     Route: 064
  3. MULTI-VITAMINS [Concomitant]
     Route: 064
  4. CALCIUM [Concomitant]
     Route: 064
  5. TOPAMAX [Suspect]
     Indication: FOETAL EXPOSURE DURING PREGNANCY
     Route: 064
     Dates: start: 20050101, end: 20111001
  6. TYLENOL W/ CODEINE [Suspect]
     Indication: FOETAL EXPOSURE DURING PREGNANCY
     Route: 064
  7. FERROUS SULFATE TAB [Concomitant]
     Route: 064

REACTIONS (7)
  - DYSMORPHISM [None]
  - PULMONARY ARTERY STENOSIS CONGENITAL [None]
  - ATRIAL SEPTAL DEFECT [None]
  - SEPSIS [None]
  - RESPIRATORY DISTRESS [None]
  - FOETAL MACROSOMIA [None]
  - PATENT DUCTUS ARTERIOSUS [None]
